FAERS Safety Report 11706228 (Version 1)
Quarter: 2015Q4

REPORT INFORMATION
  Report Type: Report from Study
  Country: LT (occurrence: LT)
  Receive Date: 20151106
  Receipt Date: 20151106
  Transmission Date: 20160304
  Serious: Yes (Hospitalization, Other)
  Sender: FDA-Public Use
  Company Number: LT-ABBVIE-15P-234-1490390-00

PATIENT
  Age: 55 Year
  Sex: Female

DRUGS (4)
  1. OMBITASVIR/PARITAPREVIR/RITONAVIR [Suspect]
     Active Substance: OMBITASVIR\PARITAPREVIR\RITONAVIR
     Indication: CHRONIC HEPATITIS C
     Route: 048
     Dates: start: 20150429, end: 20150804
  2. RIBAVIRIN. [Concomitant]
     Active Substance: RIBAVIRIN
     Indication: CHRONIC HEPATITIS C
     Route: 048
     Dates: start: 20150429, end: 201505
  3. RIBAVIRIN. [Concomitant]
     Active Substance: RIBAVIRIN
     Route: 048
     Dates: start: 201505, end: 20150804
  4. DASABUVIR [Suspect]
     Active Substance: DASABUVIR
     Indication: CHRONIC HEPATITIS C
     Route: 048
     Dates: start: 20150429, end: 20150804

REACTIONS (13)
  - Lymphadenopathy [Unknown]
  - Dermatitis [Recovered/Resolved]
  - Lymphocytosis [Unknown]
  - Thrombocytopenia [Unknown]
  - Skin burning sensation [Recovered/Resolved]
  - Erythema [Recovered/Resolved]
  - Rash maculo-papular [Recovered/Resolved]
  - Pyrexia [Unknown]
  - Leukocytosis [Unknown]
  - Eosinophilia [Unknown]
  - Pruritus [Recovered/Resolved]
  - Liver disorder [Unknown]
  - Face oedema [Unknown]

NARRATIVE: CASE EVENT DATE: 201505
